FAERS Safety Report 5014121-6 (Version None)
Quarter: 2006Q2

REPORT INFORMATION
  Report Type: 
  Country: None (occurrence: None)
  Receive Date: 20060414
  Receipt Date: 20060106
  Transmission Date: 20061013
  Serious: No
  Sender: FDA-Public Use
  Company Number: 2006SP000093

PATIENT
  Age: 58 Year
  Sex: Male
  Weight: 99.7913 kg

DRUGS (5)
  1. LUNESTA [Suspect]
     Indication: INSOMNIA
     Dosage: 2 MG;1X;ORAL
     Route: 048
     Dates: start: 20060105, end: 20060105
  2. ATENOLOL [Concomitant]
  3. AMLODIPINE [Concomitant]
  4. ATORVASTATIN CALCIUM [Concomitant]
  5. AMBIEN [Concomitant]

REACTIONS (2)
  - DRUG INEFFECTIVE [None]
  - INSOMNIA [None]
